APPROVED DRUG PRODUCT: LORAZEPAM
Active Ingredient: LORAZEPAM
Strength: 2MG
Dosage Form/Route: TABLET;ORAL
Application: A070540 | Product #001
Applicant: USL PHARMA INC
Approved: Dec 22, 1986 | RLD: No | RS: No | Type: DISCN